FAERS Safety Report 20839268 (Version 4)
Quarter: 2022Q2

REPORT INFORMATION
  Report Type: Spontaneous
  Country: US (occurrence: US)
  Receive Date: 20220517
  Receipt Date: 20220527
  Transmission Date: 20220721
  Serious: Yes (Hospitalization, Other)
  Sender: FDA-Public Use
  Company Number: US-009507513-2205USA003572

PATIENT
  Sex: Female
  Weight: 84.3 kg

DRUGS (16)
  1. KEYTRUDA [Suspect]
     Active Substance: PEMBROLIZUMAB
     Indication: Clear cell renal cell carcinoma
     Dosage: 200 MILLIGRAM, Q3W
     Route: 042
     Dates: start: 20220422, end: 202205
  2. AXITINIB [Suspect]
     Active Substance: AXITINIB
     Indication: Clear cell renal cell carcinoma
     Dosage: 5 MILLIGRAM, BID, ON A 21-DAY SCHEDULE
     Dates: start: 20220425, end: 202205
  3. FENTANYL [Suspect]
     Active Substance: FENTANYL
     Indication: Cancer pain
     Dosage: INCREASE FENTANYL TO 37.5 MILLIGRAMS
     Dates: start: 202204
  4. REGLAN [Concomitant]
     Active Substance: METOCLOPRAMIDE HYDROCHLORIDE
     Indication: Nausea
     Dosage: 10 MG, ORAL, EVERY 8 HOURS, PRN
     Route: 048
  5. REGLAN [Concomitant]
     Active Substance: METOCLOPRAMIDE HYDROCHLORIDE
     Indication: Constipation
  6. NEXIUM 24HR [Concomitant]
     Active Substance: ESOMEPRAZOLE MAGNESIUM
     Dosage: 40 MILLIGRAM, QD
     Route: 048
  7. NORCO [Concomitant]
     Active Substance: ACETAMINOPHEN\HYDROCODONE BITARTRATE
     Dosage: 8 DOSAGE FORM, QD
     Route: 048
     Dates: start: 20220414
  8. NORCO [Concomitant]
     Active Substance: ACETAMINOPHEN\HYDROCODONE BITARTRATE
     Dosage: 1 TABLET, ORAL, EVERY 4 HOURS PRN
     Route: 048
  9. ATIVAN [Concomitant]
     Active Substance: LORAZEPAM
     Indication: Abdominal pain
     Dosage: 1 MG BID AS NEEDED (PRN)
     Route: 048
     Dates: start: 20220415
  10. ATIVAN [Concomitant]
     Active Substance: LORAZEPAM
     Indication: Nausea
  11. SINGULAIR [Concomitant]
     Active Substance: MONTELUKAST SODIUM
     Dosage: UNK
     Route: 048
     Dates: start: 20211103
  12. ASPIRIN [Concomitant]
     Active Substance: ASPIRIN
  13. DECADRON [Concomitant]
     Active Substance: DEXAMETHASONE
     Indication: Abdominal pain
     Dosage: 4 MILLIGRAM, BID
     Route: 048
     Dates: start: 20220415, end: 20220425
  14. DECADRON [Concomitant]
     Active Substance: DEXAMETHASONE
     Indication: Nausea
  15. XARELTO [Concomitant]
     Active Substance: RIVAROXABAN
     Indication: Pain
     Dosage: UNK
     Dates: start: 20220414
  16. XYZAL [Concomitant]
     Active Substance: LEVOCETIRIZINE DIHYDROCHLORIDE
     Dosage: UNK
     Route: 048
     Dates: start: 20211103

REACTIONS (22)
  - Acute respiratory failure [Not Recovered/Not Resolved]
  - Opportunistic infection [Unknown]
  - Immune-mediated lung disease [Unknown]
  - Malignant neoplasm progression [Unknown]
  - Pneumonia [Unknown]
  - Tobacco abuse [Not Recovered/Not Resolved]
  - Mobility decreased [Unknown]
  - Somnolence [Unknown]
  - Hypophagia [Unknown]
  - Abdominal mass [Unknown]
  - Gastrointestinal pain [Unknown]
  - Abdominal distension [Unknown]
  - Dehydration [Unknown]
  - Diarrhoea [Unknown]
  - Dyspnoea [Unknown]
  - Fatigue [Unknown]
  - Abdominal pain [Unknown]
  - Blood pressure abnormal [Unknown]
  - Blood urea abnormal [Unknown]
  - Blood glucose abnormal [Unknown]
  - Blood calcium abnormal [Unknown]
  - Blood phosphorus abnormal [Unknown]

NARRATIVE: CASE EVENT DATE: 20220101
